FAERS Safety Report 6544538-X (Version None)
Quarter: 2010Q1

REPORT INFORMATION
  Report Type: 
  Country: None (occurrence: None)
  Receive Date: 20100121
  Receipt Date: 20100113
  Transmission Date: 20100710
  Serious: Yes (Hospitalization)
  Sender: FDA-Public Use
  Company Number: DZ-ASTRAZENECA-2010SE01537

PATIENT
  Age: 58 Year
  Sex: Male
  Weight: 80 kg

DRUGS (2)
  1. CASODEX [Suspect]
     Indication: PROSTATE CANCER METASTATIC
     Route: 048
     Dates: start: 20080901
  2. ZOLADEX [Suspect]
     Indication: PROSTATE CANCER METASTATIC
     Dosage: 10.8 MG DURING 3 MONTHS
     Route: 058
     Dates: start: 20070901

REACTIONS (1)
  - SUBDURAL HAEMATOMA [None]
